FAERS Safety Report 15874304 (Version 6)
Quarter: 2019Q3

REPORT INFORMATION
  Report Type: Report from Study
  Country: RU (occurrence: RU)
  Receive Date: 20190126
  Receipt Date: 20190801
  Transmission Date: 20191004
  Serious: Yes (Hospitalization)
  Sender: FDA-Public Use
  Company Number: RU-EXELIXIS-XL18419018160

PATIENT
  Age: 35 Year
  Sex: Male
  Weight: 94 kg

DRUGS (7)
  1. BLINDED XL184 [Suspect]
     Active Substance: CABOZANTINIB
     Indication: MEDULLARY THYROID CANCER
     Dosage: 140 OR 60 MG PO QD
     Dates: start: 20180109
  2. BLINDED XL184 [Suspect]
     Active Substance: CABOZANTINIB
     Dosage: 100 OR 40 MG PO QD
     Dates: end: 20181227
  3. BLINDED XL184 [Suspect]
     Active Substance: CABOZANTINIB
     Dosage: 100 OR 40 MG PO QD
     Dates: end: 20181227
  4. CRYOPRECIPITATE [Concomitant]
     Active Substance: CRYOPRECIPITATED ANTIHEMOPHILIC FACTOR (HUMAN)
  5. PLASMA [Concomitant]
     Active Substance: HUMAN PLASMA
  6. BLINDED XL184 [Suspect]
     Active Substance: CABOZANTINIB
     Indication: MEDULLARY THYROID CANCER
     Dosage: 140 OR 60 MG PO QD
     Dates: start: 20180109
  7. PLATELETS [Concomitant]
     Active Substance: HUMAN PLATELET, ALLOGENIC

REACTIONS (1)
  - Acute promyelocytic leukaemia [Recovered/Resolved]

NARRATIVE: CASE EVENT DATE: 20190115
